FAERS Safety Report 8339026-4 (Version None)
Quarter: 2012Q2

REPORT INFORMATION
  Report Type: 
  Country: None (occurrence: None)
  Receive Date: 20120507
  Receipt Date: 20120426
  Transmission Date: 20120825
  Serious: Yes (Other)
  Sender: FDA-Public Use
  Company Number: FR-BRISTOL-MYERS SQUIBB COMPANY-16553984

PATIENT
  Age: 45 Year
  Sex: Female

DRUGS (4)
  1. ABILIFY [Suspect]
     Indication: ANXIETY
     Dosage: DECRESED TO 5 MG
     Dates: end: 20120101
  2. EFFEXOR [Concomitant]
  3. ABILIFY [Suspect]
     Indication: EATING DISORDER
     Dosage: DECRESED TO 5 MG
     Dates: end: 20120101
  4. ABILIFY [Suspect]
     Indication: PERSONALITY DISORDER
     Dosage: DECRESED TO 5 MG
     Dates: end: 20120101

REACTIONS (2)
  - PHLEBITIS [None]
  - PARKINSONISM [None]
